FAERS Safety Report 8186436-4 (Version None)
Quarter: 2012Q1

REPORT INFORMATION
  Report Type: 
  Country: None (occurrence: None)
  Receive Date: 20120306
  Receipt Date: 20120227
  Transmission Date: 20120608
  Serious: Yes (Death)
  Sender: FDA-Public Use
  Company Number: KR-AMGEN-KORSP2011028585

PATIENT
  Age: 76 Year
  Sex: Male

DRUGS (18)
  1. NESPO [Suspect]
     Dosage: 30 MUG, QWK
     Route: 040
     Dates: start: 20111114, end: 20111220
  2. NESPO [Suspect]
     Dosage: 120 MUG, 3 TIMES/WK
     Route: 040
     Dates: start: 20110713, end: 20110920
  3. ESPO [Suspect]
     Indication: NEPHROGENIC ANAEMIA
     Dosage: UNK UNK, UNK
     Route: 058
     Dates: start: 20110301, end: 20110331
  4. LOSARTAN POTASSIUM [Concomitant]
     Dosage: 100 MG, QD
     Route: 048
  5. NESPO [Suspect]
     Dosage: 40 MUG, QWK
     Route: 058
     Dates: start: 20100426, end: 20100615
  6. NESPO [Suspect]
     Dosage: 30 MUG, 2 TIMES/WK
     Route: 040
     Dates: start: 20111221, end: 20120113
  7. CALCIO [Concomitant]
     Dosage: 0.25 MUG, QD
     Route: 048
  8. NESPO [Suspect]
     Dosage: 120 MUG, 2 TIMES/WK
     Route: 040
     Dates: start: 20110701, end: 20110712
  9. ESPO [Suspect]
     Dosage: 9000 IU, QWK
     Route: 058
     Dates: start: 20110301, end: 20110331
  10. NORVASC [Concomitant]
     Dosage: 5 MG, QD
     Route: 048
  11. NESPO [Suspect]
     Dosage: 40 MUG, QWK
     Route: 040
     Dates: start: 20100410, end: 20100615
  12. NESPO [Suspect]
     Dosage: 120 MUG, UNK
     Route: 040
     Dates: start: 20110713, end: 20110920
  13. NESPO [Suspect]
     Indication: NEPHROGENIC ANAEMIA
     Dosage: UNK UNK, QWK
     Route: 058
     Dates: start: 20100426, end: 20100615
  14. NESPO [Suspect]
     Dosage: 120 MUG, 2 TIMES/WK
     Route: 040
     Dates: start: 20110921, end: 20111002
  15. NESPO [Suspect]
     Dosage: 120 MUG, QWK
     Route: 040
     Dates: start: 20111005, end: 20111113
  16. ESPO [Suspect]
     Dosage: 2000 MUG, 3 TIMES/WK
     Route: 040
     Dates: start: 20100701, end: 20110331
  17. CARVEDILOL [Concomitant]
     Dosage: 12.5 MG, QD
     Route: 048
  18. LANSTON [Concomitant]
     Dosage: 30 MG, QD
     Route: 048

REACTIONS (2)
  - APLASIA PURE RED CELL [None]
  - ANTI-ERYTHROPOIETIN ANTIBODY POSITIVE [None]
